FAERS Safety Report 8595940 (Version 2)
Quarter: 2013Q3

REPORT INFORMATION
  Report Type: Spontaneous
  Country: US (occurrence: US)
  Receive Date: 20120605
  Receipt Date: 20130723
  Transmission Date: 20140515
  Serious: Yes (Hospitalization, Disabling, Other)
  Sender: FDA-Public Use
  Company Number: US-ASTRAZENECA-2012SE35998

PATIENT
  Age: 33 Year
  Sex: Female

DRUGS (10)
  1. NEXIUM [Suspect]
     Indication: GASTROOESOPHAGEAL REFLUX DISEASE
     Route: 048
     Dates: start: 1990
  2. PRILOSEC [Suspect]
     Route: 048
  3. PREVACID OTC [Concomitant]
  4. ZANTAC [Concomitant]
  5. PEPCID [Concomitant]
  6. MILK OF MAGNESIA [Concomitant]
  7. GAVISCON [Concomitant]
  8. PEPTO-BISMOL [Concomitant]
  9. ROLAIDS [Concomitant]
  10. MYLANTA [Concomitant]

REACTIONS (15)
  - Hip fracture [Unknown]
  - Osteoarthritis [Unknown]
  - Myocardial infarction [Unknown]
  - Cerebrovascular accident [Unknown]
  - Rotator cuff syndrome [Unknown]
  - Osteoporosis [Unknown]
  - Multiple fractures [Unknown]
  - Hand fracture [Unknown]
  - Calcium deficiency [Unknown]
  - Arthritis [Unknown]
  - Diabetes mellitus [Unknown]
  - Vitamin D deficiency [Unknown]
  - Bone disorder [Unknown]
  - Meniscus injury [Unknown]
  - Depression [Unknown]
